APPROVED DRUG PRODUCT: SODIUM CHLORIDE 0.9% IN PLASTIC CONTAINER
Active Ingredient: SODIUM CHLORIDE
Strength: 18MG/2ML (9MG/ML)
Dosage Form/Route: SOLUTION;INJECTION
Application: A088912 | Product #004
Applicant: FRESENIUS KABI USA LLC
Approved: Nov 29, 1985 | RLD: No | RS: Yes | Type: RX